FAERS Safety Report 8820142 (Version 1)
Quarter: 2012Q4

REPORT INFORMATION
  Report Type: 
  Country: DE (occurrence: DE)
  Receive Date: 20121001
  Receipt Date: 20121001
  Transmission Date: 20130627
  Serious: Yes (Disabling)
  Sender: FDA-Public Use
  Company Number: DE-ROCHE-1103818

PATIENT
  Age: 47 Year
  Sex: Female
  Weight: 55 kg

DRUGS (9)
  1. PACLITAXEL [Suspect]
     Indication: METASTASES TO CENTRAL NERVOUS SYSTEM
     Dosage: Drug reported as Abraxane
     Route: 065
     Dates: start: 20120524, end: 20120628
  2. PACLITAXEL [Suspect]
     Indication: METASTASES TO BONE
  3. AVASTIN [Suspect]
     Indication: METASTASES TO BONE
     Route: 065
     Dates: start: 20120425
  4. AVASTIN [Suspect]
     Indication: METASTASES TO LIVER
  5. DEXAMETHASONE [Concomitant]
     Indication: METASTASES TO CENTRAL NERVOUS SYSTEM
     Route: 065
  6. CLEXANE [Concomitant]
     Indication: DEEP VEIN THROMBOSIS
     Route: 065
     Dates: start: 20111110
  7. EUTHYROX [Concomitant]
     Indication: HYPOTHYROIDISM
     Route: 065
  8. METOHEXAL [Concomitant]
     Indication: HYPERTENSION
     Route: 065
     Dates: start: 20111108
  9. BONDRONAT [Concomitant]
     Indication: BREAST CANCER METASTATIC
     Route: 065
     Dates: start: 20110928

REACTIONS (2)
  - Optic atrophy [Not Recovered/Not Resolved]
  - Blindness unilateral [Not Recovered/Not Resolved]
